FAERS Safety Report 10349978 (Version 1)
Quarter: 2014Q3

REPORT INFORMATION
  Report Type: Spontaneous
  Country: US (occurrence: US)
  Receive Date: 20140730
  Receipt Date: 20140730
  Transmission Date: 20150326
  Serious: No
  Sender: FDA-Public Use
  Company Number: US-GLAXOSMITHKLINE-A1039372A

PATIENT
  Sex: Female

DRUGS (2)
  1. RELPAX [Concomitant]
     Active Substance: ELETRIPTAN HYDROBROMIDE
  2. IMITREX [Suspect]
     Active Substance: SUMATRIPTAN\SUMATRIPTAN SUCCINATE
     Indication: PRODUCT USED FOR UNKNOWN INDICATION
     Route: 065

REACTIONS (1)
  - Pain [Unknown]
